FAERS Safety Report 24229569 (Version 1)
Quarter: 2024Q3

REPORT INFORMATION
  Report Type: Spontaneous
  Country: CN (occurrence: CN)
  Receive Date: 20240820
  Receipt Date: 20240820
  Transmission Date: 20241017
  Serious: Yes (Other)
  Sender: ELI LILLY AND CO
  Company Number: CN-ELI_LILLY_AND_COMPANY-CN202408006675

PATIENT
  Age: 75 Year
  Sex: Female
  Weight: 36 kg

DRUGS (1)
  1. SELPERCATINIB [Suspect]
     Active Substance: SELPERCATINIB
     Indication: Neoplasm malignant
     Dosage: 80 MG, BID
     Route: 048
     Dates: start: 20240717, end: 20240802

REACTIONS (3)
  - Myelosuppression [Recovering/Resolving]
  - Diarrhoea [Unknown]
  - Fatigue [Unknown]

NARRATIVE: CASE EVENT DATE: 20240802
